FAERS Safety Report 6413861 (Version 4)
Quarter: 2012Q4

REPORT INFORMATION
  Report Type: 
  Country: US (occurrence: US)
  Receive Date: 20070914
  Receipt Date: 20121107
  Transmission Date: 20130627
  Serious: Yes (Death)
  Sender: FDA-Public Use
  Company Number: US-PURDUE-USA_2007_0028110

PATIENT
  Age: 18 Year
  Sex: Female

DRUGS (1)
  1. OXYCONTIN TABLETS [Suspect]
     Indication: DRUG ABUSE
     Dosage: UNK
     Route: 048
     Dates: start: 2006

REACTIONS (3)
  - Accidental overdose [Fatal]
  - Drug abuse [Fatal]
  - Respiratory depression [Fatal]
